FAERS Safety Report 6642813-1 (Version None)
Quarter: 2010Q1

REPORT INFORMATION
  Report Type: 
  Country: None (occurrence: None)
  Receive Date: 20100319
  Receipt Date: 20100308
  Transmission Date: 20100710
  Serious: Yes (Hospitalization)
  Sender: FDA-Public Use
  Company Number: DE-PFIZER INC-2010005707

PATIENT
  Age: 74 Year
  Sex: Female
  Weight: 50 kg

DRUGS (7)
  1. AROMASIN [Suspect]
     Indication: BREAST CANCER FEMALE
     Dosage: 25 MG, 1X/DAY
     Route: 048
     Dates: start: 20091201, end: 20100101
  2. TAMOXIFEN CITRATE [Suspect]
     Indication: BREAST CANCER FEMALE
     Dosage: UNK
     Dates: start: 20100101
  3. RAMIPRIL [Concomitant]
     Indication: HYPERTENSION
     Dosage: 10 MG, UNK
     Route: 048
  4. ESIDRIX [Concomitant]
     Dosage: 25 MG, UNK
     Route: 048
  5. AMARYL [Concomitant]
     Indication: DIABETES MELLITUS
     Dosage: 3 MG, UNK
     Route: 048
  6. CARMEN [Concomitant]
     Dosage: 20 MG, UNK
     Route: 048
  7. PRAVASTATIN [Concomitant]
     Dosage: 20 MG, UNK
     Route: 048

REACTIONS (2)
  - MASTITIS [None]
  - RASH GENERALISED [None]
